FAERS Safety Report 25388836 (Version 2)
Quarter: 2025Q4

REPORT INFORMATION
  Report Type: Report from Study
  Country: US (occurrence: US)
  Receive Date: 20250603
  Receipt Date: 20251112
  Transmission Date: 20260118
  Serious: Yes (Other)
  Sender: AMGEN
  Company Number: US-AMGEN-USASL2025018509

PATIENT
  Sex: Female
  Weight: 64.9 kg

DRUGS (1)
  1. OTEZLA [Suspect]
     Active Substance: APREMILAST
     Indication: Psoriasis
     Dosage: 30 MILLIGRAM, BID
     Route: 065

REACTIONS (4)
  - Deafness neurosensory [Recovered/Resolved]
  - Psoriatic arthropathy [Unknown]
  - Temporomandibular pain and dysfunction syndrome [Unknown]
  - Stress [Unknown]
